FAERS Safety Report 10070627 (Version 3)
Quarter: 2014Q2

REPORT INFORMATION
  Report Type: Spontaneous
  Country: US (occurrence: US)
  Receive Date: 20140410
  Receipt Date: 20140428
  Transmission Date: 20141212
  Serious: No
  Sender: FDA-Public Use
  Company Number: US-009507513-1202USA00551

PATIENT
  Sex: Male
  Weight: 68.27 kg

DRUGS (5)
  1. PROPECIA [Suspect]
     Indication: ANDROGENETIC ALOPECIA
     Dosage: 1 MG, QD
     Route: 048
     Dates: start: 20020918, end: 2006
  2. PROPECIA [Suspect]
     Dosage: 1 MG, UNK
     Route: 048
     Dates: start: 20060304, end: 20070219
  3. PROPECIA [Suspect]
     Dosage: 1 MG, QD
     Route: 048
     Dates: start: 2007, end: 20090217
  4. PROPECIA [Suspect]
     Dosage: 1 MG, UNK
     Route: 048
  5. ALLEGRA [Concomitant]
     Indication: RHINITIS ALLERGIC
     Dosage: 60 MG, BID

REACTIONS (9)
  - Cognitive disorder [Not Recovered/Not Resolved]
  - Seborrhoeic dermatitis [Unknown]
  - Papilloma viral infection [Unknown]
  - Palpitations [Unknown]
  - Blood bilirubin increased [Unknown]
  - Motion sickness [Unknown]
  - Headache [Unknown]
  - Sexual dysfunction [Not Recovered/Not Resolved]
  - Erectile dysfunction [Unknown]
